FAERS Safety Report 8113781-0 (Version None)
Quarter: 2012Q1

REPORT INFORMATION
  Report Type: 
  Country: None (occurrence: None)
  Receive Date: 20120203
  Receipt Date: 20120201
  Transmission Date: 20120608
  Serious: Yes (Other)
  Sender: FDA-Public Use
  Company Number: US-PFIZER INC-2010178012

PATIENT
  Sex: Female
  Weight: 79.365 kg

DRUGS (18)
  1. PRISTIQ [Concomitant]
     Indication: BLOOD TRIGLYCERIDES ABNORMAL
  2. FENOFIBRATE [Concomitant]
     Indication: BLOOD CHOLESTEROL ABNORMAL
     Dosage: 130 MG, 1X/DAY
     Route: 048
  3. LYRICA [Suspect]
     Indication: FIBROMYALGIA
     Dosage: TWO TIMES A DAY
     Route: 048
     Dates: start: 20070101
  4. LYRICA [Suspect]
     Dosage: 75 MG, 2X/DAY
  5. LORTAB [Concomitant]
     Indication: PAIN
     Dosage: 7.5/500MG 4 TIMES DAILY
     Route: 048
  6. PRISTIQ [Concomitant]
     Indication: DEPRESSION
     Dosage: 100 MG, 1X/DAY
     Route: 048
  7. ESTRADIOL [Concomitant]
     Indication: HORMONE THERAPY
     Dosage: 1 MG, 1X/DAY
  8. CYCLOSPORINE [Concomitant]
     Indication: EYE DISORDER
     Dosage: TWO TIMES A DAY
     Route: 047
  9. TOFRANIL [Concomitant]
     Indication: DEPRESSION
     Dosage: 75 MG, 1X/DAY
  10. SPIRIVA [Concomitant]
     Indication: WHEEZING
     Dosage: UNK
  11. SOMA [Concomitant]
     Indication: MUSCLE RELAXANT THERAPY
     Dosage: 350 MG, 4X/DAY
     Route: 048
  12. SPIRIVA [Concomitant]
     Indication: DYSPNOEA
  13. PLAQUENIL [Concomitant]
     Indication: SJOGREN'S SYNDROME
     Dosage: 200 MG, 2X/DAY
  14. MIRAPEX [Concomitant]
     Indication: RESTLESS LEGS SYNDROME
     Dosage: 0.25 MG, 3X/DAY
  15. PREVACID [Concomitant]
     Indication: GASTRIC DISORDER
     Dosage: 3 MG, 1X/DAY
     Route: 048
  16. ALLEGRA [Concomitant]
     Indication: HYPERSENSITIVITY
     Dosage: 180 MG, 1X/DAY
     Route: 048
  17. SEROQUEL [Concomitant]
     Indication: BIPOLAR DISORDER
     Dosage: 150 MG, 1X/DAY
     Route: 048
  18. MAXZIDE [Concomitant]
     Dosage: 75/50MG DAILY

REACTIONS (12)
  - DYSPNOEA [None]
  - CONTUSION [None]
  - HYPERSENSITIVITY [None]
  - BLOOD TRIGLYCERIDES INCREASED [None]
  - DRY EYE [None]
  - HIP ARTHROPLASTY [None]
  - FATIGUE [None]
  - DRY MOUTH [None]
  - PAIN [None]
  - DRY SKIN [None]
  - EMOTIONAL DISORDER [None]
  - ASTHENIA [None]
